FAERS Safety Report 4580118-3 (Version None)
Quarter: 2005Q1

REPORT INFORMATION
  Report Type: 
  Country: None (occurrence: None)
  Receive Date: 20050214
  Receipt Date: 20050208
  Transmission Date: 20050727
  Serious: Yes (Other)
  Sender: FDA-Public Use
  Company Number: TR-BRISTOL-MYERS SQUIBB COMPANY-12858155

PATIENT
  Age: 64 Year
  Sex: Female

DRUGS (2)
  1. HYDROXYUREA [Suspect]
     Indication: ESSENTIAL THROMBOCYTHAEMIA
  2. LISINOPRIL [Concomitant]
     Indication: HYPERTENSION

REACTIONS (4)
  - FEMORAL ARTERIAL STENOSIS [None]
  - POPLITEAL STENOSIS [None]
  - SKIN ULCER [None]
  - VENOUS INSUFFICIENCY [None]
